FAERS Safety Report 5731044-5 (Version None)
Quarter: 2008Q2

REPORT INFORMATION
  Report Type: 
  Country: None (occurrence: None)
  Receive Date: 20080505
  Receipt Date: 20080418
  Transmission Date: 20081010
  Serious: No
  Sender: FDA-Public Use
  Company Number: 002#2#2008-00263

PATIENT
  Age: 77 Year
  Sex: Female
  Weight: 102.9665 kg

DRUGS (8)
  1. NEUPRO [Suspect]
     Indication: PARKINSON'S DISEASE
     Dosage: 6MG/24H, 1 IN 1 D, TRANSDERMAL
     Route: 062
     Dates: start: 20070101
  2. PARCOPA [Suspect]
     Indication: PARKINSON'S DISEASE
     Dosage: MG, 1 IN 1 D, ORAL
     Route: 048
     Dates: start: 20070101
  3. CARBIDOPA AND LEVODOPA [Concomitant]
  4. NAMENDA [Concomitant]
  5. LYRICA [Concomitant]
  6. LEXAPRO [Concomitant]
  7. ATENOLOL [Concomitant]
  8. SYNTHROID [Concomitant]

REACTIONS (1)
  - NAUSEA [None]
